FAERS Safety Report 16991676 (Version 2)
Quarter: 2019Q4

REPORT INFORMATION
  Report Type: Spontaneous
  Country: JP (occurrence: JP)
  Receive Date: 20191104
  Receipt Date: 20191108
  Transmission Date: 20200122
  Serious: Yes (Other)
  Sender: FDA-Public Use
  Company Number: JP-BAXTER-2019BAX020071

PATIENT
  Age: 55 Year
  Sex: Female

DRUGS (12)
  1. UROMITEXAN 400 MG [Suspect]
     Active Substance: MESNA
     Route: 041
     Dates: start: 20190928, end: 20190930
  2. SAMTIREL [Suspect]
     Active Substance: ATOVAQUONE
     Indication: ANTIFUNGAL PROPHYLAXIS
     Dosage: 1500 MG/TIME
     Route: 048
     Dates: start: 20190918
  3. EPIRUBICIN HYDROCHLORIDE. [Suspect]
     Active Substance: EPIRUBICIN HYDROCHLORIDE
     Indication: ENTEROPATHY-ASSOCIATED T-CELL LYMPHOMA
     Dosage: IVE 1ST CYCLE CHEMOTHERAPY
     Route: 065
     Dates: start: 20190809
  4. GRANISETRON HYDROCHLORIDE. [Suspect]
     Active Substance: GRANISETRON HYDROCHLORIDE
     Indication: PROPHYLAXIS OF NAUSEA AND VOMITING
     Route: 041
     Dates: start: 20190928, end: 20190928
  5. CELLTOP 100 MG/5 ML, SOLUTION INJECTABLE POUR PERFUSION [Suspect]
     Active Substance: ETOPOSIDE
     Indication: ENTEROPATHY-ASSOCIATED T-CELL LYMPHOMA
     Dosage: 2ND CYCLE CHEMOTHERAPY
     Route: 041
     Dates: start: 20190928, end: 20190928
  6. UROMITEXAN 400 MG [Suspect]
     Active Substance: MESNA
     Indication: PROPHYLAXIS
     Route: 041
     Dates: start: 20190928
  7. EPIRUBICIN HYDROCHLORIDE. [Suspect]
     Active Substance: EPIRUBICIN HYDROCHLORIDE
     Dosage: IVE 2ND CYCLE CHEMOTHERAPY
     Route: 041
     Dates: start: 20190928, end: 20190930
  8. METHOTREXATE. [Suspect]
     Active Substance: METHOTREXATE
     Indication: ENTEROPATHY-ASSOCIATED T-CELL LYMPHOMA
     Dosage: IVE 1ST CYCLE CHEMOTHERAPY
     Route: 065
     Dates: start: 20190809
  9. UROMITEXAN 400 MG [Suspect]
     Active Substance: MESNA
     Dosage: DOSE REDUCED
     Route: 041
     Dates: start: 20191001
  10. HOLOXAN [Suspect]
     Active Substance: IFOSFAMIDE
     Indication: ENTEROPATHY-ASSOCIATED T-CELL LYMPHOMA
     Dosage: IVE 1ST CYCLE CHEMOTHERAPY
     Route: 041
     Dates: start: 20190809, end: 20190811
  11. METHOTREXATE. [Suspect]
     Active Substance: METHOTREXATE
     Dosage: IVE 2ND CYCLE CHEMOTHERAPY
     Route: 065
     Dates: start: 20190928
  12. HOLOXAN [Suspect]
     Active Substance: IFOSFAMIDE
     Dosage: IVE 2ND CYCLE CHEMOTHERAPY
     Route: 041
     Dates: start: 20190928, end: 20190930

REACTIONS (6)
  - Brain stem ischaemia [Unknown]
  - Blood pressure increased [Unknown]
  - Febrile neutropenia [Recovered/Resolved]
  - Muscle twitching [Recovered/Resolved]
  - Epilepsy [Unknown]
  - Disorientation [Unknown]

NARRATIVE: CASE EVENT DATE: 201910
